FAERS Safety Report 6744479-9 (Version None)
Quarter: 2010Q2

REPORT INFORMATION
  Report Type: 
  Country: None (occurrence: None)
  Receive Date: 20100527
  Receipt Date: 20100517
  Transmission Date: 20101027
  Serious: Yes (Death, Other)
  Sender: FDA-Public Use
  Company Number: JP-PFIZER INC-2010053578

PATIENT
  Age: 79 Year
  Sex: Male

DRUGS (1)
  1. ZYVOX [Suspect]
     Indication: SEPSIS
     Dosage: 600 MG, 2X/DAY
     Route: 042
     Dates: start: 20100420, end: 20100429

REACTIONS (1)
  - WHITE BLOOD CELL COUNT DECREASED [None]
